FAERS Safety Report 5745658-X (Version None)
Quarter: 2008Q2

REPORT INFORMATION
  Report Type: 
  Country: None (occurrence: None)
  Receive Date: 20080521
  Receipt Date: 20080514
  Transmission Date: 20081010
  Serious: Yes (Hospitalization, Disabling, Other)
  Sender: FDA-Public Use
  Company Number: PHHO2006GB11299

PATIENT
  Age: 53 Year
  Sex: Female
  Weight: 94.2 kg

DRUGS (1)
  1. ZOLEDRONIC ACID [Suspect]
     Indication: METASTASES TO BONE
     Dosage: 4 MG, UNK
     Route: 042
     Dates: start: 20040512, end: 20050224

REACTIONS (10)
  - BACTERIAL INFECTION [None]
  - BONE DEBRIDEMENT [None]
  - GINGIVAL ABSCESS [None]
  - GINGIVAL INFECTION [None]
  - GINGIVAL ULCERATION [None]
  - OSTEOMYELITIS [None]
  - OSTEONECROSIS [None]
  - PAIN [None]
  - SWELLING [None]
  - TOOTH EXTRACTION [None]
